FAERS Safety Report 12111646 (Version 1)
Quarter: 2016Q1

REPORT INFORMATION
  Report Type: Spontaneous
  Country: US (occurrence: US)
  Receive Date: 20160224
  Receipt Date: 20160224
  Transmission Date: 20160526
  Serious: No
  Sender: FDA-Public Use
  Company Number: US-JAZZ-2015-US-020120

PATIENT
  Sex: Male

DRUGS (1)
  1. PRIALT [Suspect]
     Active Substance: ZICONOTIDE ACETATE
     Indication: SPINAL PAIN
     Dosage: 0.05 ?G, QH
     Route: 037
     Dates: start: 20140514, end: 20140617

REACTIONS (2)
  - Erythema [Unknown]
  - Device issue [Unknown]

NARRATIVE: CASE EVENT DATE: 2014
